FAERS Safety Report 7649839-X (Version None)
Quarter: 2011Q3

REPORT INFORMATION
  Report Type: 
  Country: None (occurrence: None)
  Receive Date: 20110802
  Receipt Date: 20110725
  Transmission Date: 20111222
  Serious: Yes (Hospitalization, Other)
  Sender: FDA-Public Use
  Company Number: US-BAYER-200928289NA

PATIENT
  Age: 19 Year
  Sex: Female
  Weight: 83 kg

DRUGS (2)
  1. YAZ [Suspect]
     Indication: CONTRACEPTION
     Dosage: 1 DF (DAILY DOSE), QD, ORAL
     Route: 048
     Dates: start: 20090201, end: 20090702
  2. ANTITHROMBOTIC AGENTS [Concomitant]

REACTIONS (6)
  - PULMONARY EMBOLISM [None]
  - DYSPNOEA EXERTIONAL [None]
  - CHEST PAIN [None]
  - PULMONARY INFARCTION [None]
  - PLEURAL EFFUSION [None]
  - PLEURITIC PAIN [None]
